FAERS Safety Report 8018708-8 (Version None)
Quarter: 2012Q1

REPORT INFORMATION
  Report Type: 
  Country: None (occurrence: None)
  Receive Date: 20120103
  Receipt Date: 20120103
  Transmission Date: 20120608
  Serious: Yes (Life-Threatening, Hospitalization, Other)
  Sender: FDA-Public Use
  Company Number: None

PATIENT
  Sex: Male
  Weight: 117.93 kg

DRUGS (1)
  1. PRADAXA [Suspect]
     Indication: ATRIAL FIBRILLATION
     Dosage: STANDARD DOSAGE
     Route: 048

REACTIONS (7)
  - VOMITING [None]
  - DIVERTICULITIS INTESTINAL HAEMORRHAGIC [None]
  - NAUSEA [None]
  - DIARRHOEA [None]
  - MEMORY IMPAIRMENT [None]
  - HAEMOGLOBIN DECREASED [None]
  - ABDOMINAL DISTENSION [None]
